FAERS Safety Report 19893501 (Version 1)
Quarter: 2021Q3

REPORT INFORMATION
  Report Type: Spontaneous
  Country: FR (occurrence: FR)
  Receive Date: 20210929
  Receipt Date: 20210929
  Transmission Date: 20211014
  Serious: Yes (Hospitalization, Other)
  Sender: FDA-Public Use
  Company Number: FR-AUROBINDO-AUR-APL-2021-040372

PATIENT
  Age: 77 Year
  Sex: Male
  Weight: 36.7 kg

DRUGS (1)
  1. AMOXICILLIN. [Suspect]
     Active Substance: AMOXICILLIN
     Indication: LIVER ABSCESS
     Dosage: 2 GRAM (EVERY 4 D)
     Route: 048
     Dates: start: 20210727, end: 20210802

REACTIONS (4)
  - Hallucination, visual [Recovering/Resolving]
  - Attention deficit hyperactivity disorder [Recovering/Resolving]
  - Disorientation [Recovering/Resolving]
  - Confusional state [Recovering/Resolving]

NARRATIVE: CASE EVENT DATE: 20210729
